FAERS Safety Report 22989353 (Version 4)
Quarter: 2024Q2

REPORT INFORMATION
  Report Type: Other
  Country: US (occurrence: None)
  Receive Date: 20230927
  Receipt Date: 20240603
  Transmission Date: 20240716
  Serious: No
  Sender: FDA-Public Use
  Company Number: US-ROCHE-3427846

PATIENT
  Age: 55 Year
  Sex: Male

DRUGS (1)
  1. OCREVUS [Suspect]
     Active Substance: OCRELIZUMAB
     Indication: Relapsing-remitting multiple sclerosis
     Dosage: INFUSE 600 MG EVERY 6 MONTHS?DATE OF TREATMENT: 01/JUL/2020, 13/JUL/2021, 04/APR/2023. MOST RECENT I
     Route: 042
     Dates: start: 20170719

REACTIONS (3)
  - COVID-19 [Recovered/Resolved]
  - Cough [Unknown]
  - Rhinorrhoea [Unknown]

NARRATIVE: CASE EVENT DATE: 20230823
